FAERS Safety Report 18509073 (Version 1)
Quarter: 2020Q4

REPORT INFORMATION
  Report Type: Spontaneous
  Country: US (occurrence: US)
  Receive Date: 20201117
  Receipt Date: 20201117
  Transmission Date: 20210114
  Serious: No
  Sender: FDA-Public Use
  Company Number: US-AUROBINDO-AUR-APL-2020-031204

PATIENT
  Age: 43 Year
  Sex: Male
  Weight: 88.45 kg

DRUGS (3)
  1. GABAPENTIN. [Concomitant]
     Active Substance: GABAPENTIN
     Indication: PRODUCT USED FOR UNKNOWN INDICATION
     Dosage: UNK
     Route: 065
  2. MODAFINIL TABLETS USP 200MG [Suspect]
     Active Substance: MODAFINIL
     Indication: FATIGUE
  3. MODAFINIL TABLETS USP 200MG [Suspect]
     Active Substance: MODAFINIL
     Indication: SHIFT WORK DISORDER
     Dosage: 100MG TO 200MG, AS NEEDED
     Route: 048
     Dates: start: 2015

REACTIONS (1)
  - Drug ineffective [Unknown]

NARRATIVE: CASE EVENT DATE: 20200618
